FAERS Safety Report 5630686-5 (Version None)
Quarter: 2008Q1

REPORT INFORMATION
  Report Type: 
  Country: None (occurrence: None)
  Receive Date: 20080219
  Receipt Date: 20080211
  Transmission Date: 20080703
  Serious: Yes (Death, Hospitalization, Other)
  Sender: FDA-Public Use
  Company Number: US-MERCK-0706USA00929

PATIENT
  Age: 88 Year
  Sex: Female

DRUGS (2)
  1. FOSAMAX [Suspect]
     Indication: OSTEOPOROSIS
     Route: 048
     Dates: start: 20020826, end: 20060605
  2. VITAMINS (UNSPECIFIED) [Concomitant]
     Route: 065

REACTIONS (23)
  - ACANTHOSIS [None]
  - ACTINOMYCOSIS [None]
  - ANOREXIA [None]
  - ASTHENIA [None]
  - CHRONIC OBSTRUCTIVE PULMONARY DISEASE [None]
  - DEATH [None]
  - DECUBITUS ULCER [None]
  - DEMENTIA [None]
  - DIARRHOEA [None]
  - EMPHYSEMA [None]
  - FAILURE TO THRIVE [None]
  - FUNGAL INFECTION [None]
  - GASTROINTESTINAL HAEMORRHAGE [None]
  - HYPERAEMIA [None]
  - MUCOSAL INFLAMMATION [None]
  - MYOCARDIAL INFARCTION [None]
  - OSTEOMYELITIS [None]
  - OSTEONECROSIS [None]
  - PNEUMONIA [None]
  - SKIN ULCER [None]
  - TRAUMATIC FRACTURE [None]
  - URINARY TRACT INFECTION [None]
  - WHEEZING [None]
